FAERS Safety Report 11865710 (Version 2)
Quarter: 2016Q1

REPORT INFORMATION
  Report Type: Spontaneous
  Country: US (occurrence: US)
  Receive Date: 20151223
  Receipt Date: 20160104
  Transmission Date: 20160526
  Serious: No
  Sender: FDA-Public Use
  Company Number: US-BAYER-2015-495176

PATIENT
  Age: 22 Month
  Sex: Female
  Weight: 9.7 kg

DRUGS (1)
  1. ALEVE PM [Suspect]
     Active Substance: DIPHENHYDRAMINE HYDROCHLORIDE\NAPROXEN SODIUM
     Dosage: UNK UNK, ONCE
     Route: 048
     Dates: start: 20151222, end: 20151222

REACTIONS (3)
  - Accidental exposure to product by child [None]
  - Medication residue present [None]
  - Failure of child resistant mechanism for pharmaceutical product [None]

NARRATIVE: CASE EVENT DATE: 20151222
